FAERS Safety Report 20845276 (Version 1)
Quarter: 2022Q2

REPORT INFORMATION
  Report Type: Spontaneous
  Country: US (occurrence: None)
  Receive Date: 20220518
  Receipt Date: 20220518
  Transmission Date: 20220721
  Serious: Yes (unspecified)
  Sender: FDA-Public Use
  Company Number: None

PATIENT
  Age: 61 Year
  Sex: Female
  Weight: 130 kg

DRUGS (1)
  1. ATORVASTATIN CALCIUM [Suspect]
     Active Substance: ATORVASTATIN CALCIUM
     Indication: Hyperlipidaemia
     Dosage: 10 MG EVERY DAY PO
     Route: 048
     Dates: start: 20210115, end: 20220510

REACTIONS (6)
  - Urticaria [None]
  - Peripheral swelling [None]
  - Lip swelling [None]
  - Swelling face [None]
  - Dysphagia [None]
  - Anaphylactic reaction [None]

NARRATIVE: CASE EVENT DATE: 20220510
